FAERS Safety Report 7737819-5 (Version None)
Quarter: 2011Q3

REPORT INFORMATION
  Report Type: 
  Country: None (occurrence: None)
  Receive Date: 20110908
  Receipt Date: 20110830
  Transmission Date: 20111222
  Serious: Yes (Other)
  Sender: FDA-Public Use
  Company Number: CA-JNJFOC-20110900742

PATIENT
  Sex: Female
  Weight: 73 kg

DRUGS (6)
  1. REMICADE [Suspect]
     Indication: RHEUMATOID ARTHRITIS
     Route: 042
     Dates: start: 20110701
  2. METHOTREXATE [Concomitant]
     Route: 065
  3. REMICADE [Suspect]
     Dosage: 3 LOADING DOSES
     Route: 042
     Dates: start: 20101001, end: 20110101
  4. MELOXICAM [Concomitant]
     Route: 065
  5. PREDNISONE [Concomitant]
     Route: 065
  6. ORENCIA [Concomitant]
     Route: 065

REACTIONS (4)
  - CHILLS [None]
  - PRURITUS [None]
  - BODY TEMPERATURE INCREASED [None]
  - HEART RATE INCREASED [None]
